FAERS Safety Report 5064412-8 (Version None)
Quarter: 2006Q3

REPORT INFORMATION
  Report Type: 
  Country: None (occurrence: None)
  Receive Date: 20060728
  Receipt Date: 20060717
  Transmission Date: 20061208
  Serious: Yes (Hospitalization, Other)
  Sender: FDA-Public Use
  Company Number: FR-BRISTOL-MYERS SQUIBB COMPANY-13448667

PATIENT
  Age: 82 Year
  Sex: Female

DRUGS (12)
  1. VASTEN TABS 20 MG [Suspect]
     Route: 048
     Dates: start: 20051128, end: 20060101
  2. XALACOM [Suspect]
     Route: 047
  3. CATAPRES [Suspect]
     Indication: HYPERTENSION
     Route: 048
     Dates: start: 20051203, end: 20060106
  4. COZAAR [Concomitant]
     Route: 048
     Dates: start: 19980101
  5. PRAXILENE [Concomitant]
     Route: 048
     Dates: start: 19970101
  6. ISOPTIN [Concomitant]
     Route: 048
     Dates: start: 20000101
  7. SEROPRAM [Concomitant]
     Indication: DEPRESSION
     Dates: start: 20050901
  8. EVISTA [Concomitant]
     Indication: OSTEOPOROSIS
     Route: 048
     Dates: start: 20050101, end: 20060101
  9. ASPIRIN [Concomitant]
     Route: 048
     Dates: start: 19980101
  10. DEROXAT [Concomitant]
     Route: 048
     Dates: start: 20041001, end: 20050501
  11. MOCLAMINE [Concomitant]
     Route: 048
     Dates: start: 20050501
  12. STABLON [Concomitant]
     Indication: DEPRESSION
     Route: 048
     Dates: start: 20050901

REACTIONS (6)
  - ANTINUCLEAR ANTIBODY POSITIVE [None]
  - DEEP VEIN THROMBOSIS [None]
  - INFECTION [None]
  - PLEURAL EFFUSION [None]
  - PLEURISY [None]
  - PULMONARY EMBOLISM [None]
